FAERS Safety Report 4663534-0 (Version None)
Quarter: 2005Q2

REPORT INFORMATION
  Report Type: 
  Country: None (occurrence: None)
  Receive Date: 20050517
  Receipt Date: 20050421
  Transmission Date: 20051028
  Serious: Yes (Other)
  Sender: FDA-Public Use
  Company Number: US-GLAXOSMITHKLINE-B0378935A

PATIENT
  Sex: Female

DRUGS (1)
  1. PAROXETINE HCL [Suspect]
     Route: 065

REACTIONS (5)
  - AFFECTIVE DISORDER [None]
  - DISTURBANCE IN SOCIAL BEHAVIOUR [None]
  - DRUG WITHDRAWAL SYNDROME [None]
  - RELATIONSHIP BREAKDOWN [None]
  - SUICIDAL IDEATION [None]
